FAERS Safety Report 14496611 (Version 1)
Quarter: 2018Q1

REPORT INFORMATION
  Report Type: Spontaneous
  Country: BR (occurrence: BR)
  Receive Date: 20180207
  Receipt Date: 20180207
  Transmission Date: 20180509
  Serious: Yes (Hospitalization, Other)
  Sender: FDA-Public Use
  Company Number: BR-AMGEN-BRASP2018015067

PATIENT
  Age: 41 Year
  Sex: Female
  Weight: 55 kg

DRUGS (8)
  1. COMPLEXO B [Concomitant]
  2. ACIDO FOLICO [Concomitant]
     Active Substance: CYANOCOBALAMIN\FOLIC ACID\PYRIDOXINE HYDROCHLORIDE
  3. ATORVASTATINA [Concomitant]
     Active Substance: ATORVASTATIN
  4. MIMPARA [Suspect]
     Active Substance: CINACALCET HYDROCHLORIDE
     Indication: CHRONIC KIDNEY DISEASE
     Dosage: 30 MG, QD
     Route: 065
  5. CALCITROL [Concomitant]
     Active Substance: CALCITRIOL
  6. NORIPURUM [Concomitant]
     Active Substance: IRON POLYMALTOSE
  7. HEMAX [Concomitant]
  8. ESOMEPRAZOL [Concomitant]
     Active Substance: ESOMEPRAZOLE

REACTIONS (2)
  - Unevaluable event [Not Recovered/Not Resolved]
  - Cardiac disorder [Not Recovered/Not Resolved]

NARRATIVE: CASE EVENT DATE: 2017
